FAERS Safety Report 4346730-1 (Version None)
Quarter: 2004Q1

REPORT INFORMATION
  Report Type: 
  Country: None (occurrence: None)
  Receive Date: 20040325
  Receipt Date: 20031218
  Transmission Date: 20041129
  Serious: No
  Sender: FDA-Public Use
  Company Number: USA031255139

PATIENT
  Age: 66 Year
  Sex: Female

DRUGS (1)
  1. FORTEO [Suspect]
     Dates: start: 20031111

REACTIONS (5)
  - BLADDER DISCOMFORT [None]
  - DIZZINESS [None]
  - MICTURITION URGENCY [None]
  - MUSCLE CRAMP [None]
  - URINARY TRACT INFECTION [None]
